FAERS Safety Report 4507278-4 (Version None)
Quarter: 2004Q4

REPORT INFORMATION
  Report Type: 
  Country: None (occurrence: None)
  Receive Date: 20041118
  Receipt Date: 20041103
  Transmission Date: 20050328
  Serious: Yes (Hospitalization)
  Sender: FDA-Public Use
  Company Number: B0350329A

PATIENT
  Age: 8 Year
  Sex: Female

DRUGS (4)
  1. AMOXIL [Suspect]
     Dosage: 2 GRAM (S)/ SINGLE DOSE
  2. CO-TRIMOXAZOLE [Concomitant]
  3. NITROFURANTOIN [Concomitant]
  4. CEPHALEXIN [Concomitant]

REACTIONS (10)
  - ABDOMINAL PAIN [None]
  - ANOREXIA [None]
  - CARDIAC VALVE VEGETATION [None]
  - DECREASED ACTIVITY [None]
  - ENDOCARDITIS BACTERIAL [None]
  - FATIGUE [None]
  - GLOMERULONEPHRITIS [None]
  - PURPURA [None]
  - STREPTOCOCCAL INFECTION [None]
  - URINARY TRACT INFECTION [None]
